FAERS Safety Report 5401222-3 (Version None)
Quarter: 2007Q3

REPORT INFORMATION
  Report Type: 
  Country: None (occurrence: None)
  Receive Date: 20070726
  Receipt Date: 20070718
  Transmission Date: 20080115
  Serious: Yes (Other)
  Sender: FDA-Public Use
  Company Number: 2007SP014435

PATIENT
  Age: 46 Year
  Sex: Female

DRUGS (2)
  1. REBETOL [Suspect]
     Indication: HEPATITIS
     Dosage: 2 DF; BID; PO
     Route: 048
     Dates: end: 20070401
  2. INFERGEN [Suspect]
     Indication: HEPATITIS
     Dates: end: 20070401

REACTIONS (5)
  - ALOPECIA [None]
  - AMNESIA [None]
  - GOUT [None]
  - IMMUNE SYSTEM DISORDER [None]
  - RASH GENERALISED [None]
